FAERS Safety Report 9503916 (Version 1)
Quarter: 2013Q3

REPORT INFORMATION
  Report Type: Spontaneous
  Country: US (occurrence: None)
  Receive Date: 20130905
  Receipt Date: 20130905
  Transmission Date: 20140515
  Serious: Yes (Disabling)
  Sender: FDA-Public Use
  Company Number: None

PATIENT
  Age: 32 Year
  Sex: Male
  Weight: 74.84 kg

DRUGS (1)
  1. CIPROFLOXACIN [Suspect]
     Indication: URINARY TRACT INFECTION
     Dosage: 2 PILLS  TWICE DAILY  TAKEN BY MOUTH
     Route: 048
     Dates: start: 20110208, end: 20110222

REACTIONS (7)
  - Paraesthesia [None]
  - Hypoaesthesia [None]
  - Sensory loss [None]
  - Asthenia [None]
  - Pain [None]
  - Paraesthesia [None]
  - Burning feet syndrome [None]
